FAERS Safety Report 20690487 (Version 5)
Quarter: 2022Q3

REPORT INFORMATION
  Report Type: Report from Study
  Country: GT (occurrence: GT)
  Receive Date: 20220408
  Receipt Date: 20220722
  Transmission Date: 20221027
  Serious: Yes (Life-Threatening, Other)
  Sender: FDA-Public Use
  Company Number: GT-NOVARTISPH-NVSC2022GT076828

PATIENT
  Age: 23 Year
  Sex: Female
  Weight: 104.5 kg

DRUGS (7)
  1. SECUKINUMAB [Suspect]
     Active Substance: SECUKINUMAB
     Indication: Hidradenitis
     Dosage: 300 MG, Q2W
     Route: 058
     Dates: start: 20210525
  2. SULFUR [Concomitant]
     Active Substance: SULFUR
     Indication: Hidradenitis
     Dosage: UNK
     Route: 065
     Dates: start: 20210428
  3. LANSOPRAZOLE [Concomitant]
     Active Substance: LANSOPRAZOLE
     Indication: Gastritis
     Dosage: 20 MG, Q24H
     Route: 048
     Dates: start: 20210420, end: 20210425
  4. CLINDAMYCIN [Concomitant]
     Active Substance: CLINDAMYCIN
     Indication: Product used for unknown indication
     Dosage: EVERY 24 HOUR
     Route: 061
     Dates: start: 20210420, end: 20210427
  5. DOXYCYCLINE [Concomitant]
     Active Substance: DOXYCYCLINE
     Indication: Product used for unknown indication
     Dosage: UNK
     Route: 048
     Dates: start: 20180101, end: 20180301
  6. BETAMETASONE DIPROPIONATO [Concomitant]
     Indication: Product used for unknown indication
     Dosage: EVERY 24 HOUR
     Route: 061
     Dates: start: 20180101, end: 20180606
  7. KETOCONAZOLE [Concomitant]
     Active Substance: KETOCONAZOLE
     Indication: Product used for unknown indication
     Dosage: EVERY 24 HOUR
     Route: 061
     Dates: start: 20180101, end: 20180101

REACTIONS (2)
  - Depression [Not Recovered/Not Resolved]
  - Obsessive-compulsive disorder [Not Recovered/Not Resolved]

NARRATIVE: CASE EVENT DATE: 20220404
